FAERS Safety Report 7441884-2 (Version None)
Quarter: 2011Q2

REPORT INFORMATION
  Report Type: 
  Country: None (occurrence: None)
  Receive Date: 20110428
  Receipt Date: 20101108
  Transmission Date: 20111010
  Serious: No
  Sender: FDA-Public Use
  Company Number: US-ASTRAZENECA-2010SE52881

PATIENT
  Sex: Male
  Weight: 83.5 kg

DRUGS (2)
  1. ZOMIG [Suspect]
     Indication: MIGRAINE
     Route: 048
     Dates: start: 20101026
  2. ZOMIG [Suspect]
     Dosage: 3-4 HOURS AFTER FIRST DOSE
     Route: 048
     Dates: end: 20101026

REACTIONS (3)
  - DISEASE RECURRENCE [None]
  - DRUG INEFFECTIVE [None]
  - URTICARIA [None]
